FAERS Safety Report 15065230 (Version 1)
Quarter: 2018Q2

REPORT INFORMATION
  Report Type: Report from Study
  Country: US (occurrence: US)
  Receive Date: 20180626
  Receipt Date: 20180626
  Transmission Date: 20180711
  Serious: Yes (Other)
  Sender: FDA-Public Use
  Company Number: US-CIPLA LTD.-2018US19452

PATIENT

DRUGS (16)
  1. PACLITAX NAB [Suspect]
     Active Substance: PACLITAXEL
     Dosage: 75 MG/M2, UNK, DOSE LEVEL 5
     Route: 065
  2. PACLITAX NAB [Suspect]
     Active Substance: PACLITAXEL
     Indication: PANCREATIC CARCINOMA METASTATIC
     Dosage: 50 MG/M2, UNK, DOSE LEVEL 1
     Route: 065
  3. ASPIRIN                            /00002701/ [Suspect]
     Active Substance: ASPIRIN
     Indication: AORTIC STENOSIS
     Dosage: UNK
     Route: 065
  4. PACLITAX NAB [Suspect]
     Active Substance: PACLITAXEL
     Dosage: 75 MG/M2, UNK, DOSE LEVEL 2
     Route: 065
  5. IRINOTECAN [Suspect]
     Active Substance: IRINOTECAN
     Indication: PANCREATIC CARCINOMA METASTATIC
     Dosage: UNK
     Route: 065
  6. PACLITAX NAB [Suspect]
     Active Substance: PACLITAXEL
     Dosage: 50 MG/M2, UNK, DOSE LEVEL 3
     Route: 065
  7. BEVACIZUMAB. [Suspect]
     Active Substance: BEVACIZUMAB
     Indication: PANCREATIC CARCINOMA METASTATIC
     Dosage: 5 MG/KG, UNK, DOSE LEVEL 1
     Route: 065
  8. BEVACIZUMAB. [Suspect]
     Active Substance: BEVACIZUMAB
     Dosage: 10 MG/KG, UNK, DOSE LEVEL 3
     Route: 065
  9. CLOPIDOGREL [Suspect]
     Active Substance: CLOPIDOGREL BISULFATE
     Indication: AORTIC STENOSIS
     Dosage: UNK
     Route: 065
  10. GEMCITABINE [Suspect]
     Active Substance: GEMCITABINE\GEMCITABINE HYDROCHLORIDE
     Indication: PANCREATIC CARCINOMA METASTATIC
     Dosage: 1000 MG/M2, UNK, DAYS 1, 8, 15 (FIXED DOSE FROM LEVEL 1 TO LEVEL 5)
     Route: 065
  11. PACLITAX NAB [Suspect]
     Active Substance: PACLITAXEL
     Dosage: 100 MG/M2, UNK, DOSE LEVEL 4
     Route: 065
  12. BEVACIZUMAB. [Suspect]
     Active Substance: BEVACIZUMAB
     Dosage: 5 MG/KG, UNK, DOSE LEVEL 4
     Route: 065
  13. BEVACIZUMAB. [Suspect]
     Active Substance: BEVACIZUMAB
     Dosage: 5 MG/KG, UNK, DOSE LEVEL 2
     Route: 065
  14. BEVACIZUMAB. [Suspect]
     Active Substance: BEVACIZUMAB
     Dosage: 10 MG/KG, UNK, DOSE LEVEL 5
     Route: 065
  15. CISPLATIN. [Suspect]
     Active Substance: CISPLATIN
     Indication: PANCREATIC CARCINOMA METASTATIC
     Dosage: UNK
     Route: 065
  16. CAPECITABINE. [Suspect]
     Active Substance: CAPECITABINE
     Indication: PANCREATIC CARCINOMA METASTATIC
     Dosage: UNK
     Route: 065

REACTIONS (2)
  - Therapy non-responder [Unknown]
  - Gastrointestinal haemorrhage [Unknown]
